FAERS Safety Report 4874434-5 (Version None)
Quarter: 2005Q4

REPORT INFORMATION
  Report Type: 
  Country: None (occurrence: None)
  Receive Date: 20051201
  Receipt Date: 20050811
  Transmission Date: 20060501
  Serious: No
  Sender: FDA-Public Use
  Company Number: 2005PV001068

PATIENT
  Age: 50 Year
  Sex: Male
  Weight: 146.5118 kg

DRUGS (3)
  1. BYETTA [Suspect]
     Indication: DIABETES MELLITUS NON-INSULIN-DEPENDENT
     Dosage: 5 MCG; BID; SC
     Route: 058
     Dates: start: 20050810
  2. METFORMIN [Concomitant]
  3. AMARYL [Concomitant]

REACTIONS (2)
  - DECREASED APPETITE [None]
  - SALIVARY HYPERSECRETION [None]
